FAERS Safety Report 24001559 (Version 1)
Quarter: 2024Q2

REPORT INFORMATION
  Report Type: Other
  Country: IN (occurrence: None)
  Receive Date: 20240621
  Receipt Date: 20240621
  Transmission Date: 20240716
  Serious: Yes (Hospitalization)
  Sender: FDA-Public Use
  Company Number: IN-Invatech-000348

PATIENT
  Age: 37 Year
  Sex: Female

DRUGS (5)
  1. CYPROHEPTADINE [Suspect]
     Active Substance: CYPROHEPTADINE
     Indication: Serotonin syndrome
     Dosage: 8 MG QID (FOUR TIMES A DAY)
  2. CHLORPHENIRAMINE W/DEXTROMETHORPH [Concomitant]
     Indication: Cough
  3. TRAMADOL [Concomitant]
     Active Substance: TRAMADOL\TRAMADOL HYDROCHLORIDE
     Indication: Pain
  4. CYPROHEPTADINE [Suspect]
     Active Substance: CYPROHEPTADINE
     Indication: Serotonin syndrome
     Dosage: 2 MG EVERY 2 HOURS
  5. CYPROHEPTADINE [Suspect]
     Active Substance: CYPROHEPTADINE
     Indication: Serotonin syndrome
     Dosage: 12 MG

REACTIONS (3)
  - Therapy partial responder [Unknown]
  - Pyrexia [Recovered/Resolved]
  - Irritability [Recovered/Resolved]
